FAERS Safety Report 6746452-3 (Version None)
Quarter: 2010Q2

REPORT INFORMATION
  Report Type: 
  Country: None (occurrence: None)
  Receive Date: 20100528
  Receipt Date: 20100409
  Transmission Date: 20101027
  Serious: No
  Sender: FDA-Public Use
  Company Number: US-ASTRAZENECA-2010SE15838

PATIENT
  Sex: Female

DRUGS (1)
  1. PRILOSEC [Suspect]
     Dosage: 1 TABLET / DAY
     Route: 048

REACTIONS (3)
  - ERYTHEMA [None]
  - HYPERSENSITIVITY [None]
  - MALAISE [None]
